FAERS Safety Report 5257781-7 (Version None)
Quarter: 2007Q1

REPORT INFORMATION
  Report Type: 
  Country: None (occurrence: None)
  Receive Date: 20070307
  Receipt Date: 20070226
  Transmission Date: 20070707
  Serious: Yes (Hospitalization, Other)
  Sender: FDA-Public Use
  Company Number: HQWYE230428FEB07

PATIENT
  Age: 20 Year
  Sex: Male
  Weight: 66.5 kg

DRUGS (5)
  1. SIROLIMUS [Suspect]
     Indication: PROPHYLAXIS AGAINST TRANSPLANT REJECTION
     Dosage: 6 MG AT ONSET
     Route: 048
     Dates: start: 20070203, end: 20070201
  2. SIROLIMUS [Suspect]
     Route: 048
     Dates: start: 20070201, end: 20070216
  3. SIROLIMUS [Suspect]
     Route: 048
     Dates: start: 20070217
  4. CYCLOSPORINE [Concomitant]
     Indication: PROPHYLAXIS AGAINST TRANSPLANT REJECTION
     Route: 048
     Dates: start: 20070203, end: 20070212
  5. CYCLOSPORINE [Concomitant]
     Route: 048
     Dates: start: 20070212

REACTIONS (1)
  - KIDNEY TRANSPLANT REJECTION [None]
